FAERS Safety Report 5050987-1 (Version None)
Quarter: 2006Q3

REPORT INFORMATION
  Report Type: 
  Country: None (occurrence: None)
  Receive Date: 20060714
  Receipt Date: 20060707
  Transmission Date: 20061208
  Serious: Yes (Hospitalization)
  Sender: FDA-Public Use
  Company Number: PHBS2006JP10287

PATIENT

DRUGS (3)
  1. CLEANAL [Concomitant]
  2. GASCON [Concomitant]
  3. DIOVAN [Suspect]
     Route: 048

REACTIONS (1)
  - HYPONATRAEMIA [None]
